FAERS Safety Report 21650663 (Version 2)
Quarter: 2022Q4

REPORT INFORMATION
  Report Type: Spontaneous
  Country: JP (occurrence: JP)
  Receive Date: 20221128
  Receipt Date: 20221228
  Transmission Date: 20230113
  Serious: Yes (Other)
  Sender: FDA-Public Use
  Company Number: JP-MYLANLABS-2022M1131507

PATIENT
  Age: 66 Year
  Sex: Male

DRUGS (3)
  1. CARBOPLATIN [Suspect]
     Active Substance: CARBOPLATIN
     Indication: Pleural mesothelioma malignant
     Dosage: RECEIVED FIRST LINE CYCLICAL TREATMENT AT AREA UNDER THE CONCENTRATION-TIME CURVE OF 5,ONE CYCLE UND
     Route: 065
  2. PEMETREXED [Suspect]
     Active Substance: PEMETREXED
     Indication: Pleural mesothelioma malignant
     Dosage: 400 MILLIGRAM/SQ. METER, CYCLE, RECEIVED FIRST LINE CYCLICAL TREATMENT, ONE CYCLE UNDER SYSTEMIC CHE
     Route: 065
  3. NIVOLUMAB [Suspect]
     Active Substance: NIVOLUMAB
     Indication: Pleural mesothelioma malignant
     Dosage: RECEIVED SECOND LINE CYCLICAL TREATMENT, 12 CYCLES UNDER SYSTEMIC CHEMOTHERAPY
     Route: 065

REACTIONS (1)
  - Drug ineffective [Unknown]
